FAERS Safety Report 7808357-6 (Version None)
Quarter: 2011Q4

REPORT INFORMATION
  Report Type: 
  Country: None (occurrence: None)
  Receive Date: 20111007
  Receipt Date: 20110923
  Transmission Date: 20120403
  Serious: Yes (Other)
  Sender: FDA-Public Use
  Company Number: AXC-2011-000440

PATIENT

DRUGS (1)
  1. URSODIOL [Suspect]
     Indication: BILIARY CIRRHOSIS PRIMARY

REACTIONS (5)
  - HEPATIC FUNCTION ABNORMAL [None]
  - AUTOIMMUNE HEPATITIS [None]
  - HEPATIC ENCEPHALOPATHY [None]
  - DISEASE PROGRESSION [None]
  - BILIARY CIRRHOSIS PRIMARY [None]
